FAERS Safety Report 8584234-0 (Version None)
Quarter: 2012Q3

REPORT INFORMATION
  Report Type: 
  Country: None (occurrence: None)
  Receive Date: 20120810
  Receipt Date: 20120801
  Transmission Date: 20120928
  Serious: Yes (Hospitalization)
  Sender: FDA-Public Use
  Company Number: FR-BRISTOL-MYERS SQUIBB COMPANY-16836264

PATIENT
  Age: 90 Year
  Sex: Male

DRUGS (8)
  1. ONGLYZA [Suspect]
     Dosage: 1DF: 1INTAKE
     Route: 048
     Dates: start: 20110901
  2. ASPIRIN [Concomitant]
  3. LAMICTAL [Suspect]
     Route: 048
     Dates: start: 20101201, end: 20120523
  4. IMOVANE [Concomitant]
  5. SILODOSIN [Concomitant]
  6. AVODART [Concomitant]
  7. VASTAREL [Concomitant]
  8. ATORVASTATIN [Concomitant]

REACTIONS (1)
  - PEMPHIGOID [None]
